FAERS Safety Report 5901449-8 (Version None)
Quarter: 2008Q3

REPORT INFORMATION
  Report Type: 
  Country: None (occurrence: None)
  Receive Date: 20080929
  Receipt Date: 20080729
  Transmission Date: 20090109
  Serious: No
  Sender: FDA-Public Use
  Company Number: US-BAYER-200830093NA

PATIENT
  Sex: Female

DRUGS (2)
  1. OCELLA [Suspect]
     Indication: PREMENSTRUAL SYNDROME
  2. SOMETHING EXTRA FOR MY PMDD [Concomitant]

REACTIONS (2)
  - CRYING [None]
  - MOOD ALTERED [None]
